FAERS Safety Report 9252184 (Version 2)
Quarter: 2013Q4

REPORT INFORMATION
  Report Type: Report from Study
  Country: ES (occurrence: ES)
  Receive Date: 20130424
  Receipt Date: 20131017
  Transmission Date: 20140711
  Serious: Yes (Life-Threatening, Hospitalization)
  Sender: FDA-Public Use
  Company Number: ES-TEVA-400052USA

PATIENT
  Age: 68 Year
  Sex: Male
  Weight: 77.5 kg

DRUGS (3)
  1. BENDAMUSTINE [Suspect]
     Indication: PLASMA CELL MYELOMA
     Dosage: CYCLE 8, DAY 1
     Route: 042
     Dates: start: 20120711, end: 20130325
  2. VELCADE [Suspect]
     Indication: PLASMA CELL MYELOMA
     Dosage: CYCLE 8 DAY 1
     Route: 042
     Dates: start: 20120711, end: 20130325
  3. PREDNISONE [Suspect]
     Indication: PLASMA CELL MYELOMA
     Dosage: CYCLE 8, DAY 3
     Route: 042
     Dates: start: 20120711, end: 20130327

REACTIONS (2)
  - Respiratory failure [Unknown]
  - Pneumonia [Recovered/Resolved]
